FAERS Safety Report 7934797-0 (Version None)
Quarter: 2011Q4

REPORT INFORMATION
  Report Type: 
  Country: None (occurrence: None)
  Receive Date: 20111117
  Receipt Date: 20111109
  Transmission Date: 20120403
  Serious: Yes (Other)
  Sender: FDA-Public Use
  Company Number: 2011SP053226

PATIENT
  Sex: Female

DRUGS (4)
  1. FLUDROCORTISONE ACETATE [Concomitant]
  2. MIDODRINE HYDROCHLORIDE [Concomitant]
  3. SSRI [Concomitant]
  4. CERAZETTE (DESOGESTREL /00754001/) [Suspect]
     Indication: ORAL CONTRACEPTION

REACTIONS (3)
  - HYPOTENSION [None]
  - AUTONOMIC NERVOUS SYSTEM IMBALANCE [None]
  - MOBILITY DECREASED [None]
